FAERS Safety Report 12496554 (Version 1)
Quarter: 2016Q2

REPORT INFORMATION
  Report Type: Report from Study
  Country: FR (occurrence: FR)
  Receive Date: 20160624
  Receipt Date: 20160624
  Transmission Date: 20160815
  Serious: Yes (Hospitalization)
  Sender: FDA-Public Use
  Company Number: FR-GUERBET LLC-1054306

PATIENT
  Age: 82 Year
  Sex: Female

DRUGS (1)
  1. OPTIRAY [Suspect]
     Active Substance: IOVERSOL
     Indication: ABDOMEN SCAN
     Dates: start: 20160615, end: 20160615

REACTIONS (5)
  - Type I hypersensitivity [Recovering/Resolving]
  - Laryngeal discomfort [Recovering/Resolving]
  - Cyanosis [Recovering/Resolving]
  - Angioedema [Recovering/Resolving]
  - Dysphonia [Recovering/Resolving]

NARRATIVE: CASE EVENT DATE: 20160615
